FAERS Safety Report 4494449-9 (Version None)
Quarter: 2004Q4

REPORT INFORMATION
  Report Type: 
  Country: None (occurrence: None)
  Receive Date: 20041102
  Receipt Date: 20041019
  Transmission Date: 20050328
  Serious: Yes (Hospitalization)
  Sender: FDA-Public Use
  Company Number: DE-JNJFOC-20041007223

PATIENT
  Age: 20 Year
  Sex: Female

DRUGS (4)
  1. IBUPROFEN [Suspect]
     Indication: NASOPHARYNGITIS
     Dosage: PO, 3 WEEKS
  2. RHINOPRONT (TETRYZOLINE HYDROCHLORIDE) [Suspect]
     Indication: NASOPHARYNGITIS
     Dosage: PO, 3 WEEKS
  3. ORAL CONTRACEPTIVE (ORAL CONTRACEPTIVE) [Concomitant]
  4. ALL OTHER THERAPEUTIC AGENTS [Suspect]

REACTIONS (6)
  - ALANINE AMINOTRANSFERASE INCREASED [None]
  - ASPARTATE AMINOTRANSFERASE INCREASED [None]
  - BILIRUBIN CONJUGATED INCREASED [None]
  - BLOOD BILIRUBIN INCREASED [None]
  - CEREBRAL HAEMORRHAGE [None]
  - THROMBOTIC THROMBOCYTOPENIC PURPURA [None]
